FAERS Safety Report 9211160 (Version 1)
Quarter: 2013Q2

REPORT INFORMATION
  Report Type: Spontaneous
  Country: DE (occurrence: DE)
  Receive Date: 20130404
  Receipt Date: 20130404
  Transmission Date: 20140414
  Serious: Yes (Other)
  Sender: FDA-Public Use
  Company Number: PHHY2013DE030642

PATIENT
  Age: 73 Year
  Sex: Female
  Weight: 66 kg

DRUGS (5)
  1. JAKAVI [Suspect]
     Indication: MYELOFIBROSIS
     Dosage: 5 MG, BID
     Route: 048
     Dates: start: 20120911
  2. ASS [Suspect]
     Indication: CEREBROVASCULAR ACCIDENT
     Dosage: 100 MG
     Route: 048
  3. RANITIDIN [Concomitant]
     Route: 048
  4. LORANO [Concomitant]
     Indication: PRURITUS
     Route: 048
  5. LORANO [Concomitant]
     Indication: MYELOFIBROSIS

REACTIONS (3)
  - Soft tissue haemorrhage [Not Recovered/Not Resolved]
  - Platelet count decreased [None]
  - Haemoglobin decreased [None]
